FAERS Safety Report 5062059-0 (Version None)
Quarter: 2006Q3

REPORT INFORMATION
  Report Type: 
  Country: None (occurrence: None)
  Receive Date: 20060726
  Receipt Date: 20051014
  Transmission Date: 20061208
  Serious: Yes (Other)
  Sender: FDA-Public Use
  Company Number: PHNU2005DE03455

PATIENT
  Age: 75 Year
  Sex: Female
  Weight: 65 kg

DRUGS (4)
  1. AROMASIN [Concomitant]
     Route: 048
     Dates: start: 20010901
  2. NOVAMINSULFON ^LICHTENSTEIN^ [Concomitant]
     Dosage: UNK, PRN
     Route: 048
     Dates: start: 20010801
  3. TRANSTEC [Concomitant]
     Route: 062
     Dates: start: 20030401
  4. ZOMETA [Suspect]
     Indication: METASTASES TO BONE
     Dosage: 4 MG, UNK
     Route: 042
     Dates: start: 20030401, end: 20051013

REACTIONS (2)
  - OSTEONECROSIS [None]
  - TOOTH EXTRACTION [None]
